APPROVED DRUG PRODUCT: ACULAR PRESERVATIVE FREE
Active Ingredient: KETOROLAC TROMETHAMINE
Strength: 0.5%
Dosage Form/Route: SOLUTION/DROPS;OPHTHALMIC
Application: N020811 | Product #001
Applicant: ALLERGAN INC
Approved: Nov 3, 1997 | RLD: No | RS: No | Type: DISCN